FAERS Safety Report 6383683-9 (Version None)
Quarter: 2009Q3

REPORT INFORMATION
  Report Type: 
  Country: None (occurrence: None)
  Receive Date: 20090929
  Receipt Date: 20090929
  Transmission Date: 20100115
  Serious: Yes (Life-Threatening)
  Sender: FDA-Public Use
  Company Number: None

PATIENT
  Age: 40 Year
  Sex: Female
  Weight: 90.7194 kg

DRUGS (6)
  1. CYMBALTA [Suspect]
     Indication: ANXIETY
     Dosage: 90 MG 1 PER DAY PO
     Route: 048
     Dates: start: 20080901, end: 20090915
  2. CYMBALTA [Suspect]
     Indication: DEPRESSION
     Dosage: 90 MG 1 PER DAY PO
     Route: 048
     Dates: start: 20080901, end: 20090915
  3. CYMBALTA [Suspect]
     Indication: IRRITABILITY
     Dosage: 90 MG 1 PER DAY PO
     Route: 048
     Dates: start: 20080901, end: 20090915
  4. CYMBALTA [Suspect]
     Indication: PANIC ATTACK
     Dosage: 90 MG 1 PER DAY PO
     Route: 048
     Dates: start: 20080901, end: 20090915
  5. CYMBALTA [Suspect]
     Indication: PREMENSTRUAL SYNDROME
     Dosage: 90 MG 1 PER DAY PO
     Route: 048
     Dates: start: 20080901, end: 20090915
  6. XANAX [Concomitant]

REACTIONS (24)
  - ABNORMAL BEHAVIOUR [None]
  - ABNORMAL DREAMS [None]
  - ARTHROPATHY [None]
  - BURNING SENSATION [None]
  - DIARRHOEA [None]
  - DISORIENTATION [None]
  - DIZZINESS [None]
  - DRUG INEFFECTIVE [None]
  - DRUG WITHDRAWAL SYNDROME [None]
  - DYSGEUSIA [None]
  - DYSPHEMIA [None]
  - GAIT DISTURBANCE [None]
  - HEADACHE [None]
  - IMPAIRED DRIVING ABILITY [None]
  - INFLUENZA LIKE ILLNESS [None]
  - IRRITABILITY [None]
  - MALAISE [None]
  - NERVOUSNESS [None]
  - PARAESTHESIA [None]
  - PRURITUS [None]
  - PSYCHOTIC DISORDER [None]
  - SINUS DISORDER [None]
  - SLEEP DISORDER [None]
  - WEIGHT INCREASED [None]
